FAERS Safety Report 4767044-1 (Version None)
Quarter: 2005Q3

REPORT INFORMATION
  Report Type: 
  Country: None (occurrence: None)
  Receive Date: 20050913
  Receipt Date: 20050813
  Transmission Date: 20060218
  Serious: Yes (Other)
  Sender: FDA-Public Use
  Company Number: PHNU2005DE02876

PATIENT
  Sex: Female

DRUGS (4)
  1. VERAPAMIL [Concomitant]
     Route: 048
  2. ESTRIOL [Concomitant]
     Route: 065
  3. AREDIA [Suspect]
     Indication: BREAST CANCER FEMALE
     Dosage: 1 DF, QMO
  4. EUTHYROX [Concomitant]
     Route: 048

REACTIONS (4)
  - IMPLANT SITE INFLAMMATION [None]
  - IMPLANT SITE IRRITATION [None]
  - MEDICAL DEVICE REMOVAL [None]
  - OSTEITIS [None]
